FAERS Safety Report 7475981-2 (Version None)
Quarter: 2011Q2

REPORT INFORMATION
  Report Type: 
  Country: None (occurrence: None)
  Receive Date: 20110512
  Receipt Date: 20110509
  Transmission Date: 20111010
  Serious: Yes (Other)
  Sender: FDA-Public Use
  Company Number: BR-US-EMD SERONO, INC.-7058819

PATIENT
  Sex: Female

DRUGS (3)
  1. REBIF [Suspect]
     Indication: RELAPSING-REMITTING MULTIPLE SCLEROSIS
     Dates: start: 20101213
  2. ACETAMINOPHEN [Concomitant]
  3. CONDROFLEX [Concomitant]

REACTIONS (2)
  - OSTEONECROSIS [None]
  - ARTHRALGIA [None]
